FAERS Safety Report 4638073-3 (Version None)
Quarter: 2005Q2

REPORT INFORMATION
  Report Type: 
  Country: None (occurrence: None)
  Receive Date: 20050415
  Receipt Date: 20050404
  Transmission Date: 20051028
  Serious: Yes (Hospitalization)
  Sender: FDA-Public Use
  Company Number: 2004BI000555

PATIENT
  Age: 51 Year
  Sex: Male
  Weight: 58.9676 kg

DRUGS (8)
  1. AVONEX [Suspect]
     Indication: MULTIPLE SCLEROSIS
     Dosage: 30 UG; QW; IM
     Route: 030
     Dates: start: 20040501, end: 20050301
  2. FOSAMAX [Concomitant]
  3. REMERON [Concomitant]
  4. LIPITOR [Concomitant]
  5. XANAX [Concomitant]
  6. WELLBUTRIN [Concomitant]
  7. STEROIDS [Concomitant]
  8. PREDNISONE [Concomitant]

REACTIONS (12)
  - ASTHENIA [None]
  - BENIGN PROSTATIC HYPERPLASIA [None]
  - CHILLS [None]
  - DYSURIA [None]
  - FEELING ABNORMAL [None]
  - FLUSHING [None]
  - GAIT DISTURBANCE [None]
  - HEADACHE [None]
  - HYPERHIDROSIS [None]
  - INFLUENZA LIKE ILLNESS [None]
  - PYREXIA [None]
  - SOMNOLENCE [None]
